FAERS Safety Report 9907861 (Version 1)
Quarter: 2014Q1

REPORT INFORMATION
  Report Type: Spontaneous
  Country: US (occurrence: US)
  Receive Date: 20140219
  Receipt Date: 20140219
  Transmission Date: 20141002
  Serious: No
  Sender: FDA-Public Use
  Company Number: US-BIOGENIDEC-2014BI014245

PATIENT
  Age: 58 Year
  Sex: Female

DRUGS (9)
  1. TECFIDERA [Suspect]
     Indication: MULTIPLE SCLEROSIS
     Route: 048
     Dates: start: 20131108
  2. TRAMADOL [Concomitant]
  3. CALTRATE [Concomitant]
  4. METOPROLOL [Concomitant]
  5. FLOMAX [Concomitant]
  6. BACLOFEN [Concomitant]
  7. HYDROCODONE [Concomitant]
  8. TRIAMTERENE-HCTZ [Concomitant]
  9. PREVACID [Concomitant]

REACTIONS (2)
  - Depression [Unknown]
  - Flushing [Unknown]
